FAERS Safety Report 12400193 (Version 1)
Quarter: 2016Q2

REPORT INFORMATION
  Report Type: Spontaneous
  Country: US (occurrence: None)
  Receive Date: 20160524
  Receipt Date: 20160524
  Transmission Date: 20160815
  Serious: Yes (Death)
  Sender: FDA-Public Use
  Company Number: None

PATIENT
  Age: 69 Year
  Sex: Male
  Weight: 2.72 kg

DRUGS (1)
  1. OPDIVO [Suspect]
     Active Substance: NIVOLUMAB
     Indication: RENAL CANCER
     Route: 042
     Dates: start: 20151215, end: 20160228

REACTIONS (4)
  - Blood calcium abnormal [None]
  - Cardiac failure congestive [None]
  - Pneumonia [None]
  - General physical health deterioration [None]

NARRATIVE: CASE EVENT DATE: 20151215
